FAERS Safety Report 8449362-9 (Version None)
Quarter: 2012Q2

REPORT INFORMATION
  Report Type: 
  Country: None (occurrence: None)
  Receive Date: 20120619
  Receipt Date: 20120608
  Transmission Date: 20120825
  Serious: Yes (Hospitalization)
  Sender: FDA-Public Use
  Company Number: CA-FRI-1000022231

PATIENT
  Sex: Female

DRUGS (6)
  1. MACROBID [Suspect]
     Indication: URINARY TRACT INFECTION
     Dosage: 200 MG
     Route: 048
     Dates: start: 20110627, end: 20110705
  2. TRAMADOL HYDROCHLORIDE AND ACETAMINOPHEN [Concomitant]
     Indication: WISDOM TEETH REMOVAL
     Dosage: 325 MG ACETAMINOPHEN, 37.5 MG TRAMADOL
     Route: 048
     Dates: start: 20110621, end: 20110621
  3. ESCITALOPRAM [Suspect]
     Dosage: 10 MG
     Route: 048
     Dates: start: 20110704, end: 20110705
  4. ESCITALOPRAM [Suspect]
     Indication: DEPRESSION
     Dosage: 5 MG
     Route: 048
     Dates: start: 20110627, end: 20110703
  5. TYLENOL W/ CODEINE NO. 3 [Concomitant]
     Indication: WISDOM TEETH REMOVAL
     Route: 048
     Dates: start: 20110621
  6. DESOGESTREL AND ETHINYL ESTRADIOL [Concomitant]
     Indication: CONTRACEPTION
     Route: 048
     Dates: start: 20110101

REACTIONS (5)
  - URTICARIA [None]
  - GENERALISED ERYTHEMA [None]
  - EYE SWELLING [None]
  - VISUAL IMPAIRMENT [None]
  - PRURITUS GENERALISED [None]
